FAERS Safety Report 5036317-X (Version None)
Quarter: 2006Q2

REPORT INFORMATION
  Report Type: 
  Country: None (occurrence: None)
  Receive Date: 20060601
  Receipt Date: 20060426
  Transmission Date: 20061013
  Serious: No
  Sender: FDA-Public Use
  Company Number: US200604004485

PATIENT
  Age: 54 Year
  Sex: Female

DRUGS (3)
  1. CYMBALTA [Suspect]
     Indication: MOOD SWINGS
     Dosage: SEE IMAGE
  2. CELEXA [Concomitant]
  3. SYNTHROID [Concomitant]

REACTIONS (5)
  - FEELING ABNORMAL [None]
  - HOT FLUSH [None]
  - HYPERHIDROSIS [None]
  - IRRITABILITY [None]
  - PARAESTHESIA [None]
